FAERS Safety Report 8121696-7 (Version None)
Quarter: 2012Q1

REPORT INFORMATION
  Report Type: 
  Country: None (occurrence: None)
  Receive Date: 20120208
  Receipt Date: 20120201
  Transmission Date: 20120608
  Serious: Yes (Other)
  Sender: FDA-Public Use
  Company Number: US-SANOFI-AVENTIS-2012SA007133

PATIENT
  Age: 34 Year
  Sex: Female
  Weight: 74.84 kg

DRUGS (4)
  1. AMBIEN [Suspect]
  2. LUNESTA [Suspect]
  3. DIPHENHYDRAMINE HCL [Suspect]
  4. VERSED [Suspect]

REACTIONS (5)
  - LOGORRHOEA [None]
  - INSOMNIA [None]
  - ABNORMAL BEHAVIOUR [None]
  - DRUG INEFFECTIVE [None]
  - GALLBLADDER DISORDER [None]
